FAERS Safety Report 21146984 (Version 1)
Quarter: 2022Q3

REPORT INFORMATION
  Report Type: Spontaneous
  Country: US (occurrence: None)
  Receive Date: 20220729
  Receipt Date: 20220729
  Transmission Date: 20221026
  Serious: Yes (Other)
  Sender: FDA-Public Use
  Company Number: 2022A265653

PATIENT
  Sex: Female
  Weight: 29 kg

DRUGS (7)
  1. BUDESONIDE\FORMOTEROL FUMARATE DIHYDRATE [Suspect]
     Active Substance: BUDESONIDE\FORMOTEROL FUMARATE DIHYDRATE
     Indication: Chronic obstructive pulmonary disease
     Dosage: 80/4.5 120 INHALATIONS, TWO TIMES A DAY
     Route: 055
  2. METOPROLOL [Concomitant]
     Active Substance: METOPROLOL
     Route: 065
  3. AMLODIPINE [Concomitant]
     Active Substance: AMLODIPINE BESYLATE
     Route: 065
  4. FUROSEMIDE [Concomitant]
     Active Substance: FUROSEMIDE
  5. WOMENS PETITE VITAMIN [Concomitant]
     Dosage: ONE A DAY
     Route: 065
  6. TYLENOL [Concomitant]
     Active Substance: ACETAMINOPHEN
     Route: 065
  7. OXYGEN [Concomitant]
     Active Substance: OXYGEN
     Dosage: 3 L
     Route: 065

REACTIONS (11)
  - Wheezing [Unknown]
  - Productive cough [Unknown]
  - Fatigue [Unknown]
  - Visual impairment [Unknown]
  - Candida infection [Unknown]
  - Middle insomnia [Unknown]
  - Intentional product misuse [Unknown]
  - Device use issue [Unknown]
  - Drug dose omission by device [Unknown]
  - Wrong technique in device usage process [Unknown]
  - Device malfunction [Unknown]
